FAERS Safety Report 8291704-1 (Version None)
Quarter: 2012Q2

REPORT INFORMATION
  Report Type: 
  Country: None (occurrence: None)
  Receive Date: 20120417
  Receipt Date: 20120228
  Transmission Date: 20120825
  Serious: No
  Sender: FDA-Public Use
  Company Number: US-ASTRAZENECA-2012SE11554

PATIENT
  Age: 53 Year
  Sex: Female

DRUGS (1)
  1. NEXIUM [Suspect]
     Indication: GASTROOESOPHAGEAL REFLUX DISEASE
     Route: 048
     Dates: start: 20100101

REACTIONS (4)
  - FLATULENCE [None]
  - ABDOMINAL DISTENSION [None]
  - OFF LABEL USE [None]
  - ABDOMINAL DISCOMFORT [None]
